FAERS Safety Report 12202428 (Version 4)
Quarter: 2016Q2

REPORT INFORMATION
  Report Type: Spontaneous
  Country: FR (occurrence: FR)
  Receive Date: 20160322
  Receipt Date: 20160520
  Transmission Date: 20160815
  Serious: Yes (Death, Other)
  Sender: FDA-Public Use
  Company Number: FR-TEVA-643094ISR

PATIENT
  Age: 50 Year
  Sex: Female

DRUGS (50)
  1. METHYLPREDNISOLONE. [Suspect]
     Active Substance: METHYLPREDNISOLONE
     Dosage: 80 MILLIGRAM DAILY; SECOND COURSE
     Route: 042
     Dates: start: 20150907, end: 20150907
  2. METHYLPREDNISOLONE. [Suspect]
     Active Substance: METHYLPREDNISOLONE
     Dosage: 80 MILLIGRAM DAILY; FIFTH COURSE
     Route: 042
     Dates: start: 20151026, end: 20151026
  3. ONDANSETRON [Suspect]
     Active Substance: ONDANSETRON
     Indication: ADENOCARCINOMA GASTRIC
     Dosage: 8 MILLIGRAM DAILY; FIRST COURSE
     Route: 042
     Dates: start: 20150824, end: 20150824
  4. ONDANSETRON [Suspect]
     Active Substance: ONDANSETRON
     Dosage: 8 MILLIGRAM DAILY; SECOND COURSE
     Route: 042
     Dates: start: 20150907, end: 20150907
  5. LEVOFOLINATE DE CALCIUM WINTHROP 175 MG/17.5 ML [Suspect]
     Active Substance: LEVOLEUCOVORIN CALCIUM
     Dosage: 300 MILLIGRAM DAILY; SIXTH COURSE
     Route: 041
     Dates: start: 20151112, end: 20151112
  6. LEVOFOLINATE DE CALCIUM WINTHROP 175 MG/17.5 ML [Suspect]
     Active Substance: LEVOLEUCOVORIN CALCIUM
     Dosage: 300 MILLIGRAM DAILY; EIGHTH COURSE
     Route: 041
     Dates: start: 20151214, end: 20151214
  7. DOCETAXEL ACCORD [Suspect]
     Active Substance: DOCETAXEL
     Indication: ADENOCARCINOMA GASTRIC
     Dosage: 76 MILLIGRAM DAILY; FIRST COURSE
     Route: 041
     Dates: start: 20150824, end: 20150824
  8. DOCETAXEL ACCORD [Suspect]
     Active Substance: DOCETAXEL
     Dosage: 76 MILLIGRAM DAILY; FIFTH COURSE
     Route: 041
     Dates: start: 20151026, end: 20151026
  9. ELVORINE 175 MG/ 17.5 ML [Suspect]
     Active Substance: LEVOLEUCOVORIN CALCIUM
     Dosage: 300 MILLIGRAM DAILY; FIFTH COURES
     Route: 041
     Dates: start: 20151026, end: 20151026
  10. OXALIPLATINE TEVA [Suspect]
     Active Substance: OXALIPLATIN
     Dosage: 130 MILLIGRAM DAILY; FIFTH COURSE
     Route: 041
     Dates: start: 20151026, end: 20151026
  11. METHYLPREDNISOLONE. [Suspect]
     Active Substance: METHYLPREDNISOLONE
     Dosage: 80 MILLIGRAM DAILY; SIXTH COURSE
     Route: 042
     Dates: start: 20151112, end: 20151112
  12. LEVOFOLINATE DE CALCIUM WINTHROP 175 MG/17.5 ML [Suspect]
     Active Substance: LEVOLEUCOVORIN CALCIUM
     Dosage: 300 MILLIGRAM DAILY; SEVENTH COURSE
     Route: 041
     Dates: start: 20151130, end: 20151130
  13. DOCETAXEL ACCORD [Suspect]
     Active Substance: DOCETAXEL
     Dosage: 76 MILLIGRAM DAILY; FOURTH COURSE
     Route: 041
     Dates: start: 20151006, end: 20151006
  14. METHYLPREDNISOLONE. [Suspect]
     Active Substance: METHYLPREDNISOLONE
     Dosage: 80 MILLIGRAM DAILY; THIRD COURSE
     Route: 042
     Dates: start: 20150922, end: 20150922
  15. METHYLPREDNISOLONE. [Suspect]
     Active Substance: METHYLPREDNISOLONE
     Dosage: 80 MILLIGRAM DAILY; FOURTH COURSE
     Route: 042
     Dates: start: 20151006, end: 20151006
  16. DOCETAXEL ACCORD [Suspect]
     Active Substance: DOCETAXEL
     Dosage: 76 MILLIGRAM DAILY; EIGHTH COURSE
     Route: 041
     Dates: start: 20151214, end: 20151214
  17. INSTANYL 100 MICROGRAMS/DOSE [Concomitant]
     Dosage: MAXIMUM OF 6 TO 12 PER DAY
     Route: 045
  18. ONDANSETRON [Suspect]
     Active Substance: ONDANSETRON
     Dosage: 8 MILLIGRAM DAILY; THIRD COURSE
     Route: 042
     Dates: start: 20150922, end: 20150922
  19. ONDANSETRON [Suspect]
     Active Substance: ONDANSETRON
     Dosage: 8 MILLIGRAM DAILY; SIXTH COURSE
     Route: 042
     Dates: start: 20151112, end: 20151112
  20. ONDANSETRON [Suspect]
     Active Substance: ONDANSETRON
     Dosage: 8 MILLIGRAM DAILY; EIGHTH COURSE
     Route: 042
     Dates: start: 20151214, end: 20151214
  21. LEVOFOLINATE DE CALCIUM WINTHROP 175 MG/17.5 ML [Suspect]
     Active Substance: LEVOLEUCOVORIN CALCIUM
     Indication: ADENOCARCINOMA GASTRIC
     Dosage: 300 MILLIGRAM DAILY; FIRST COURSE
     Route: 041
     Dates: start: 20150824, end: 20150824
  22. FLUOROURACILE ACCORD [Suspect]
     Active Substance: FLUOROURACIL
     Dosage: 3600 MILLIGRAM DAILY; SECOND COURSE
     Route: 041
     Dates: start: 20150907, end: 20150907
  23. OXALIPLATINE TEVA [Suspect]
     Active Substance: OXALIPLATIN
     Indication: ADENOCARCINOMA GASTRIC
     Dosage: 130 MILLIGRAM DAILY; FIRST COURSE
     Route: 041
     Dates: start: 20150824, end: 20150824
  24. OXALIPLATINE TEVA [Suspect]
     Active Substance: OXALIPLATIN
     Dosage: 130 MILLIGRAM DAILY; SECOND COURSE
     Route: 041
     Dates: start: 20150907, end: 20150907
  25. OXALIPLATINE TEVA [Suspect]
     Active Substance: OXALIPLATIN
     Dosage: 130 MILLIGRAM DAILY; THIRD COURSE
     Route: 041
     Dates: start: 20150922, end: 20150922
  26. OXALIPLATINE TEVA [Suspect]
     Active Substance: OXALIPLATIN
     Dosage: 130 MILLIGRAM DAILY; SIXTH COURSE
     Route: 041
     Dates: start: 20151112, end: 20151112
  27. FLUOROURACILE ACCORD [Suspect]
     Active Substance: FLUOROURACIL
     Indication: ADENOCARCINOMA GASTRIC
     Dosage: 3600 MILLIGRAM DAILY; FIRST COURSE
     Route: 041
     Dates: start: 20150824, end: 20150824
  28. FLUOROURACILE ACCORD [Suspect]
     Active Substance: FLUOROURACIL
     Dosage: 3600 MILLIGRAM DAILY; THIRD COURSE
     Route: 041
     Dates: start: 20150922, end: 20150922
  29. OXALIPLATINE TEVA [Suspect]
     Active Substance: OXALIPLATIN
     Dosage: 130 MILLIGRAM DAILY; FOURTH COURSE
     Route: 041
     Dates: start: 20151006, end: 20151006
  30. METHYLPREDNISOLONE. [Suspect]
     Active Substance: METHYLPREDNISOLONE
     Dosage: 80 MILLIGRAM DAILY; SEVENTH COURSE
     Route: 042
     Dates: start: 20151130, end: 20151130
  31. ONDANSETRON [Suspect]
     Active Substance: ONDANSETRON
     Dosage: 8 MILLIGRAM DAILY; FOURTH COURSE
     Route: 042
     Dates: start: 20151006, end: 20151006
  32. DOCETAXEL ACCORD [Suspect]
     Active Substance: DOCETAXEL
     Dosage: 76 MILLIGRAM DAILY; SIXTH COURSE
     Route: 041
     Dates: start: 20151112, end: 20151112
  33. FLUOROURACILE ACCORD [Suspect]
     Active Substance: FLUOROURACIL
     Dosage: 3600 MILLIGRAM DAILY; FOURTH COURSE
     Route: 041
     Dates: start: 20151006, end: 20151006
  34. FLUOROURACILE ACCORD [Suspect]
     Active Substance: FLUOROURACIL
     Dosage: 3600 MILLIGRAM DAILY; FIFTH COURSE
     Route: 041
     Dates: start: 20151026, end: 20151026
  35. ELVORINE 175 MG/ 17.5 ML [Suspect]
     Active Substance: LEVOLEUCOVORIN CALCIUM
     Indication: ADENOCARCINOMA GASTRIC
     Dosage: 300 MILLIGRAM DAILY; SECOND COURES
     Route: 041
     Dates: start: 20150907, end: 20150907
  36. INEXIUM [Concomitant]
     Active Substance: ESOMEPRAZOLE
     Dosage: 40 MILLIGRAM DAILY;
     Route: 048
  37. LEVOFOLINATE DE CALCIUM WINTHROP 175 MG/17.5 ML [Suspect]
     Active Substance: LEVOLEUCOVORIN CALCIUM
     Dosage: 300 MILLIGRAM DAILY; FOURTH COURSE
     Route: 041
     Dates: start: 20151006, end: 20151006
  38. DOCETAXEL ACCORD [Suspect]
     Active Substance: DOCETAXEL
     Dosage: 76 MILLIGRAM DAILY; SEVENTH COURSE
     Route: 041
     Dates: start: 20151130, end: 20151130
  39. FLUOROURACILE ACCORD [Suspect]
     Active Substance: FLUOROURACIL
     Dosage: 3600 MILLIGRAM DAILY; SEVENTH COURSE
     Route: 041
     Dates: start: 20151130, end: 20151130
  40. DUROGESIC [Concomitant]
     Active Substance: FENTANYL
     Dosage: 12+25 MICROGRAM/HOUR
     Route: 003
  41. METHYLPREDNISOLONE. [Suspect]
     Active Substance: METHYLPREDNISOLONE
     Indication: ADENOCARCINOMA GASTRIC
     Dosage: 80 MILLIGRAM DAILY; FIRST COURSE
     Route: 042
     Dates: start: 20150824, end: 20150824
  42. METHYLPREDNISOLONE. [Suspect]
     Active Substance: METHYLPREDNISOLONE
     Dosage: 80 MILLIGRAM DAILY; EIGHTH COURSE
     Route: 042
     Dates: start: 20151214, end: 20151214
  43. ONDANSETRON [Suspect]
     Active Substance: ONDANSETRON
     Dosage: 8 MILLIGRAM DAILY; FIFTH COURSE
     Route: 042
     Dates: start: 20151026, end: 20151026
  44. ONDANSETRON [Suspect]
     Active Substance: ONDANSETRON
     Dosage: 8 MILLIGRAM DAILY; SEVENTH COURSE
     Route: 042
     Dates: start: 20151130, end: 20151130
  45. LEVOFOLINATE DE CALCIUM WINTHROP 175 MG/17.5 ML [Suspect]
     Active Substance: LEVOLEUCOVORIN CALCIUM
     Dosage: 300 MILLIGRAM DAILY; THIRD COURSE
     Route: 041
     Dates: start: 20150922, end: 20150922
  46. DOCETAXEL ACCORD [Suspect]
     Active Substance: DOCETAXEL
     Dosage: 76 MILLIGRAM DAILY; SECOND COURSE
     Route: 041
     Dates: start: 20150907, end: 20150907
  47. DOCETAXEL ACCORD [Suspect]
     Active Substance: DOCETAXEL
     Dosage: 76 MILLIGRAM DAILY; THIRD COURSE
     Route: 041
     Dates: start: 20150922, end: 20150922
  48. FLUOROURACILE ACCORD [Suspect]
     Active Substance: FLUOROURACIL
     Dosage: 3600 MILLIGRAM DAILY; SIXTH COURSE
     Route: 041
     Dates: start: 20151112, end: 20151112
  49. FLUOROURACILE ACCORD [Suspect]
     Active Substance: FLUOROURACIL
     Dosage: 3600 MILLIGRAM DAILY; EIGHTH COURSE
     Route: 041
     Dates: start: 20151214, end: 20151214
  50. EFFERALGAN 1G [Concomitant]
     Dosage: 4 GRAM DAILY; FORM: EFFERVESCENT TABLET
     Route: 048

REACTIONS (3)
  - Balance disorder [Unknown]
  - Neuropathy peripheral [Not Recovered/Not Resolved]
  - Hypoaesthesia oral [Unknown]

NARRATIVE: CASE EVENT DATE: 20151130
